FAERS Safety Report 12864982 (Version 1)
Quarter: 2016Q4

REPORT INFORMATION
  Report Type: Spontaneous
  Country: US (occurrence: US)
  Receive Date: 20161020
  Receipt Date: 20161020
  Transmission Date: 20170207
  Serious: Yes (Other)
  Sender: FDA-Public Use
  Company Number: US-ALVOGEN-2016-ALVOGEN-029433

PATIENT
  Age: 38 Year
  Sex: Male

DRUGS (3)
  1. IFOSFAMIDE. [Suspect]
     Active Substance: IFOSFAMIDE
     Indication: MYXOFIBROSARCOMA
  2. DOXORUBICIN [Suspect]
     Active Substance: DOXORUBICIN
     Indication: MYXOFIBROSARCOMA
  3. MESNA. [Suspect]
     Active Substance: MESNA
     Indication: MYXOFIBROSARCOMA

REACTIONS (4)
  - Febrile neutropenia [Unknown]
  - Pleural effusion [Unknown]
  - Pancytopenia [Unknown]
  - Pericardial effusion [Unknown]
